FAERS Safety Report 8676796 (Version 2)
Quarter: 2013Q4

REPORT INFORMATION
  Report Type: Spontaneous
  Country: GB (occurrence: GB)
  Receive Date: 20120723
  Receipt Date: 20131108
  Transmission Date: 20140711
  Serious: Yes (Hospitalization, Other)
  Sender: FDA-Public Use
  Company Number: GB-009507513-1207GBR006839

PATIENT
  Sex: Female

DRUGS (5)
  1. ZOCOR [Suspect]
     Indication: BLOOD CHOLESTEROL INCREASED
     Dosage: 80 MG, UNK
     Route: 048
     Dates: start: 201202, end: 20120611
  2. ZOCOR [Suspect]
     Dosage: 40 MG, UNK
     Route: 048
     Dates: start: 201107
  3. ZOCOR [Suspect]
     Dosage: 10 MG, UNK
     Route: 048
     Dates: start: 200712
  4. CANDESARTAN [Concomitant]
     Indication: HYPERTENSION
     Dosage: 8 MG, UNK
     Route: 048
  5. INDAPAMIDE [Concomitant]
     Indication: HYPERTENSION
     Dosage: 1.5 MG, UNK
     Route: 048

REACTIONS (3)
  - Drug-induced liver injury [Not Recovered/Not Resolved]
  - Rhabdomyolysis [Not Recovered/Not Resolved]
  - Blood creatine phosphokinase increased [Not Recovered/Not Resolved]
